FAERS Safety Report 12914854 (Version 1)
Quarter: 2016Q4

REPORT INFORMATION
  Report Type: Spontaneous
  Country: US (occurrence: US)
  Receive Date: 20161106
  Receipt Date: 20161106
  Transmission Date: 20170207
  Serious: No
  Sender: FDA-Public Use
  Company Number: US-RELYPSA-RLY2016002140

PATIENT
  Age: 54 Year
  Sex: Female

DRUGS (14)
  1. MAGNESIUM [Concomitant]
     Active Substance: MAGNESIUM
     Dosage: 2400 MG, UNKNOWN
     Route: 065
  2. YEAST [Concomitant]
     Active Substance: YEAST
     Dosage: 1200 MG, BID
     Route: 065
  3. FUROSEMIDE. [Concomitant]
     Active Substance: FUROSEMIDE
     Dosage: 40 MG, UNKNOWN
     Route: 065
  4. VITAMIN E                          /00110501/ [Concomitant]
     Active Substance: TOCOPHEROL
     Dosage: 400 IU, UNKNOWN
     Route: 065
  5. VELTASSA [Suspect]
     Active Substance: PATIROMER
     Indication: HYPERKALAEMIA
     Dosage: 8.4 G, ONCE DAILY 3X/WEEK
     Route: 048
     Dates: start: 20160819
  6. SPIRONOLACTONE. [Concomitant]
     Active Substance: SPIRONOLACTONE
     Dosage: 50 MG QAM AND 25-50 MG QPM
     Route: 065
  7. KELP                               /00082201/ [Concomitant]
     Active Substance: IODINE
     Route: 065
  8. VITAMIN B-6 [Concomitant]
     Active Substance: PYRIDOXINE
     Dosage: 100 MCG, UNKNOWN
     Route: 065
  9. CRANBERRY                          /01512301/ [Concomitant]
     Active Substance: CRANBERRY
     Dosage: 12 G, UNKNOWN
     Route: 065
  10. VITAMIN B12 [Concomitant]
     Active Substance: CYANOCOBALAMIN
     Dosage: 500 MCG, UNKNOWN
     Route: 065
  11. SALMON OIL [Concomitant]
     Active Substance: FISH OIL
     Dosage: 1500 MG, UNKNOWN
     Route: 065
  12. VITAMIN D                          /00107901/ [Concomitant]
     Active Substance: ERGOCALCIFEROL
     Dosage: 10000 IU, UNKNOWN
     Route: 065
  13. VITAMIN B-1 [Concomitant]
     Active Substance: THIAMINE
     Dosage: 100 MCG, UNKNOWN
     Route: 065
  14. ARMOUR THYROID [Concomitant]
     Active Substance: THYROID, PORCINE
     Dosage: 15 MCG, UNKNOWN
     Route: 065

REACTIONS (2)
  - Hypoglycaemia [Unknown]
  - Off label use [Not Recovered/Not Resolved]

NARRATIVE: CASE EVENT DATE: 20160824
